FAERS Safety Report 17533621 (Version 1)
Quarter: 2020Q1

REPORT INFORMATION
  Report Type: Spontaneous
  Country: GB (occurrence: GB)
  Receive Date: 20200312
  Receipt Date: 20200312
  Transmission Date: 20200409
  Serious: Yes (Other)
  Sender: FDA-Public Use
  Company Number: GB-LEO PHARMA-325382

PATIENT
  Age: 66 Year
  Sex: Female
  Weight: 51 kg

DRUGS (7)
  1. PROTOPIC [Suspect]
     Active Substance: TACROLIMUS
     Route: 061
     Dates: end: 20190508
  2. DERMOL [Concomitant]
     Active Substance: BENZALKONIUM CHLORIDE\CHLORHEXIDINE HYDROCHLORIDE\ISOPROPYL MYRISTATE\PARAFFIN
     Indication: PRODUCT USED FOR UNKNOWN INDICATION
  3. PROTOPIC [Suspect]
     Active Substance: TACROLIMUS
     Dosage: TWICE A DAY, THEN SINCE JULY 22 ALL AREAS ON MAINTENANCE - TWICE WEEKLY.
     Route: 061
     Dates: start: 20190508, end: 20190722
  4. ZEROBASE [Concomitant]
     Active Substance: MINERAL OIL\PARAFFIN
     Indication: PRODUCT USED FOR UNKNOWN INDICATION
  5. LORATADINE. [Concomitant]
     Active Substance: LORATADINE
     Indication: PRODUCT USED FOR UNKNOWN INDICATION
  6. PROTOPIC [Suspect]
     Active Substance: TACROLIMUS
     Indication: ECZEMA
     Dosage: ALL AREAS ON MAINTENANCE
     Route: 061
     Dates: start: 20190722
  7. EUMOVATE [Concomitant]
     Active Substance: CLOBETASONE BUTYRATE
     Indication: PRODUCT USED FOR UNKNOWN INDICATION

REACTIONS (8)
  - Sensitive skin [Recovering/Resolving]
  - Dermatitis contact [Unknown]
  - Rash [Not Recovered/Not Resolved]
  - Eye infection [Unknown]
  - Miliaria [Recovering/Resolving]
  - Furuncle [Unknown]
  - Oral herpes [Not Recovered/Not Resolved]
  - Erythema [Not Recovered/Not Resolved]

NARRATIVE: CASE EVENT DATE: 20190601
